FAERS Safety Report 10244670 (Version 1)
Quarter: 2014Q2

REPORT INFORMATION
  Report Type: Spontaneous
  Country: US (occurrence: US)
  Receive Date: 20140618
  Receipt Date: 20140618
  Transmission Date: 20141212
  Serious: Yes (Other)
  Sender: FDA-Public Use
  Company Number: US-BRISTOL-MYERS SQUIBB COMPANY-21013693

PATIENT
  Sex: 0

DRUGS (2)
  1. ABILIFY [Suspect]
     Indication: SCHIZOPHRENIA
     Route: 048
     Dates: start: 2013, end: 2013
  2. ABILIFY MAINTENA INJECTION [Suspect]
     Indication: SCHIZOPHRENIA
     Route: 030
     Dates: start: 2013, end: 2013

REACTIONS (3)
  - Hepatic enzyme increased [Unknown]
  - Dizziness [Unknown]
  - Feeling abnormal [Unknown]
